FAERS Safety Report 6686646-9 (Version None)
Quarter: 2010Q2

REPORT INFORMATION
  Report Type: 
  Country: None (occurrence: None)
  Receive Date: 20100419
  Receipt Date: 20100408
  Transmission Date: 20101027
  Serious: Yes (Other)
  Sender: FDA-Public Use
  Company Number: US-ELI_LILLY_AND_COMPANY-US201004002368

PATIENT
  Sex: Male

DRUGS (13)
  1. HUMALOG [Suspect]
     Indication: DIABETES MELLITUS
     Dosage: UNK, AS NEEDED
     Dates: start: 20000101
  2. HUMALOG [Suspect]
     Dosage: 10 U, OTHER
     Dates: start: 20100407, end: 20100407
  3. HUMALOG [Suspect]
     Dosage: 6 U, OTHER
     Dates: start: 20100407, end: 20100407
  4. HUMALOG [Suspect]
     Dosage: 3 U, OTHER
     Dates: start: 20100407, end: 20100407
  5. HUMALOG [Suspect]
     Dosage: 10 U, DAILY (1/D)
     Dates: start: 20000101
  6. HUMALOG [Suspect]
     Dosage: 12 U, DAILY (1/D)
     Dates: start: 20000101
  7. ERYTHROMYCIN [Concomitant]
     Dosage: 250 MG, UNKNOWN
  8. LANTUS [Concomitant]
     Dosage: 31 U, OTHER
     Dates: start: 20100407, end: 20100407
  9. WELLBATRIN [Concomitant]
  10. XANAX [Concomitant]
     Route: 058
  11. HYDROCODONE BITARTRATE [Concomitant]
  12. MUCINEX [Concomitant]
     Dosage: 600 MG, UNKNOWN
  13. COZAAR [Concomitant]

REACTIONS (6)
  - BLOOD GLUCOSE INCREASED [None]
  - BRONCHITIS [None]
  - BRONCHOPNEUMONIA [None]
  - DIABETES MELLITUS INADEQUATE CONTROL [None]
  - INJECTION SITE HAEMORRHAGE [None]
  - POOR QUALITY DRUG ADMINISTERED [None]
